FAERS Safety Report 14695589 (Version 1)
Quarter: 2018Q1

REPORT INFORMATION
  Report Type: Spontaneous
  Country: US (occurrence: US)
  Receive Date: 20180328
  Receipt Date: 20180328
  Transmission Date: 20180509
  Serious: Yes (Other)
  Sender: FDA-Public Use
  Company Number: None

PATIENT
  Age: 61 Year
  Sex: Female
  Weight: 72 kg

DRUGS (3)
  1. PRIVIGEN [Suspect]
     Active Substance: HUMAN IMMUNOGLOBULIN G
     Indication: IMMUNE SYSTEM DISORDER
     Dosage: ?          OTHER FREQUENCY:EVERY 4 WEEKS;?
     Route: 042
     Dates: start: 20180326, end: 20180326
  2. ACETAMINOPHEN 325 MG PO PRE-IG INFUSION [Concomitant]
     Dates: start: 20180326, end: 20180326
  3. DIPHENHYDRAMINE 25 MG PO PRE-IG INFUSION [Concomitant]
     Dates: start: 20180326, end: 20180326

REACTIONS (5)
  - Nausea [None]
  - Oesophageal spasm [None]
  - Chest pain [None]
  - Respiratory tract infection [None]
  - Hypertension [None]

NARRATIVE: CASE EVENT DATE: 20180326
